FAERS Safety Report 16125769 (Version 1)
Quarter: 2019Q1

REPORT INFORMATION
  Report Type: Spontaneous
  Country: FR (occurrence: FR)
  Receive Date: 20190328
  Receipt Date: 20190328
  Transmission Date: 20190418
  Serious: Yes (Hospitalization, Other)
  Sender: FDA-Public Use
  Company Number: FR-AUROBINDO-AUR-APL-2019-016229

PATIENT

DRUGS (12)
  1. SERESTA [Suspect]
     Active Substance: OXAZEPAM
     Indication: ANXIETY
     Dosage: 100 MILLIGRAM, UNK
     Route: 048
     Dates: end: 20190214
  2. KETAMINE [Suspect]
     Active Substance: KETAMINE
     Indication: FIBROMYALGIA
     Dosage: 120 MILLIGRAM, 3 TIMES A DAY
     Route: 042
     Dates: end: 20190214
  3. ESOMEPRAZOLE. [Concomitant]
     Active Substance: ESOMEPRAZOLE MAGNESIUM
     Indication: PRODUCT USED FOR UNKNOWN INDICATION
     Dosage: 40 MILLIGRAM, DAILY
     Route: 048
  4. TRAMADOL. [Suspect]
     Active Substance: TRAMADOL
     Indication: PAIN
     Dosage: 200 MILLIGRAM, DAILY
     Route: 048
     Dates: end: 20190214
  5. VALIUM [Suspect]
     Active Substance: DIAZEPAM
     Indication: ANXIETY
     Dosage: 20 MILLIGRAM, DAILY
     Route: 048
     Dates: end: 20190214
  6. BROMAZEPAM [Concomitant]
     Active Substance: BROMAZEPAM
     Indication: ANXIETY
     Dosage: 6 MILLIGRAM, DAILY
     Route: 048
  7. METHADONE AP HP [Concomitant]
     Active Substance: METHADONE HYDROCHLORIDE
     Indication: PRODUCT USED FOR UNKNOWN INDICATION
     Dosage: 240 MILLIGRAM, DAILY
     Route: 048
  8. LAROXYL [Concomitant]
     Active Substance: AMITRIPTYLINE HYDROCHLORIDE
     Indication: DEPRESSION
     Dosage: 125 MILLIGRAM, DAILY
     Route: 048
  9. ENOXAPARIN SODIUM. [Concomitant]
     Active Substance: ENOXAPARIN SODIUM
     Indication: THROMBOSIS
     Dosage: 4000 INTERNATIONAL UNIT, DAILY
     Route: 058
  10. TERCIAN [Concomitant]
     Active Substance: CYAMEMAZINE
     Indication: ANXIETY
     Dosage: 300 MILLIGRAM, DAILY
     Route: 048
  11. INSULIN [Concomitant]
     Active Substance: INSULIN NOS
     Indication: PRODUCT USED FOR UNKNOWN INDICATION
     Dosage: UNK
     Route: 058
  12. PAROXETINE. [Concomitant]
     Active Substance: PAROXETINE
     Indication: DEPRESSION
     Dosage: 40 MILLIGRAM, DAILY
     Route: 048

REACTIONS (5)
  - Hypercapnia [Recovered/Resolved]
  - Respiratory acidosis [Recovered/Resolved]
  - Hypoxia [Recovered/Resolved]
  - Somnolence [Recovered/Resolved]
  - Hypercapnic coma [Recovered/Resolved]

NARRATIVE: CASE EVENT DATE: 20190219
